FAERS Safety Report 4552475-5 (Version None)
Quarter: 2005Q1

REPORT INFORMATION
  Report Type: 
  Country: None (occurrence: None)
  Receive Date: 20050114
  Receipt Date: 20011029
  Transmission Date: 20050727
  Serious: Yes (Hospitalization)
  Sender: FDA-Public Use
  Company Number: US-BRISTOL-MYERS SQUIBB COMPANY-11052560

PATIENT
  Age: 83 Year
  Sex: Female

DRUGS (1)
  1. ENKAID [Suspect]
     Indication: ARRHYTHMIA
     Route: 048
     Dates: end: 20010910

REACTIONS (2)
  - ELECTROCARDIOGRAM QT PROLONGED [None]
  - VENTRICULAR TACHYCARDIA [None]
